FAERS Safety Report 17001662 (Version 1)
Quarter: 2019Q4

REPORT INFORMATION
  Report Type: Spontaneous
  Country: FR (occurrence: FR)
  Receive Date: 20191106
  Receipt Date: 20191106
  Transmission Date: 20200122
  Serious: Yes (Death)
  Sender: FDA-Public Use
  Company Number: FR-PFIZER INC-2019477058

PATIENT
  Age: 55 Year
  Sex: Female
  Weight: 65 kg

DRUGS (6)
  1. EMEND [Concomitant]
     Active Substance: APREPITANT
     Indication: ANTIEMETIC SUPPORTIVE CARE
     Dosage: 125 MG, CYCLIC (AT D1, THEN 80 MG DAYS 2-3)
     Route: 048
     Dates: start: 20190910, end: 20190912
  2. CISPLATINE MYLAN [Suspect]
     Active Substance: CISPLATIN
     Indication: GASTRIC CANCER
     Dosage: 134 MG, SINGLE (80 MG/M2)
     Route: 042
     Dates: start: 20190910, end: 20190910
  3. FLUOROURACILE ACCORD [Suspect]
     Active Substance: FLUOROURACIL
     Indication: GASTRIC CANCER
     Dosage: 2314 MG, CYCLIC (4000 MG/M? FOR 120H BUT STOPPED EARLIER AT 34% OR 2314MG)
     Route: 042
     Dates: start: 20190910, end: 20190912
  4. HERCEPTIN [Suspect]
     Active Substance: TRASTUZUMAB
     Indication: GASTRIC CANCER
     Dosage: 496 MG, CYCLIC (8 MG/KG)
     Route: 042
     Dates: start: 20190910, end: 20190910
  5. METHYLPREDNISOLONE SODIUM SUCCINATE. [Suspect]
     Active Substance: METHYLPREDNISOLONE SODIUM SUCCINATE
     Indication: ANTIEMETIC SUPPORTIVE CARE
     Dosage: 80 MG, CYCLIC (80MG ON D1 THEN 40 MG ON DAYS 2-5)
     Route: 042
     Dates: start: 20190910, end: 20190915
  6. ONDANSETRON [Concomitant]
     Active Substance: ONDANSETRON
     Indication: ANTIEMETIC SUPPORTIVE CARE
     Dosage: 8 MG, CYCLIC
     Route: 042
     Dates: start: 20190910, end: 20190910

REACTIONS (1)
  - Cardiac failure [Fatal]

NARRATIVE: CASE EVENT DATE: 20190911
